FAERS Safety Report 17157399 (Version 1)
Quarter: 2019Q4

REPORT INFORMATION
  Report Type: Spontaneous
  Country: RU (occurrence: RU)
  Receive Date: 20191216
  Receipt Date: 20191216
  Transmission Date: 20200122
  Serious: Yes (Other)
  Sender: FDA-Public Use
  Company Number: RU-ROCHE-2490651

PATIENT
  Sex: Female

DRUGS (7)
  1. LAPATINIB [Concomitant]
     Active Substance: LAPATINIB
  2. XELODA [Suspect]
     Active Substance: CAPECITABINE
     Indication: BREAST CANCER
     Route: 048
  3. GEMZAR [Concomitant]
     Active Substance: GEMCITABINE HYDROCHLORIDE
  4. NAVELBINE [Concomitant]
     Active Substance: VINORELBINE TARTRATE
  5. KADCYLA [Suspect]
     Active Substance: ADO-TRASTUZUMAB EMTANSINE
     Indication: BREAST CANCER
     Route: 065
  6. CARBOPLATIN. [Concomitant]
     Active Substance: CARBOPLATIN
  7. TRASTUZUMAB. [Suspect]
     Active Substance: TRASTUZUMAB
     Indication: BREAST CANCER
     Route: 065

REACTIONS (9)
  - Liver function test increased [Unknown]
  - Disease progression [Recovering/Resolving]
  - Blood bilirubin increased [Unknown]
  - Tinnitus [Unknown]
  - Metastases to liver [Recovering/Resolving]
  - Headache [Unknown]
  - Nausea [Unknown]
  - Haematotoxicity [Recovering/Resolving]
  - Metastases to central nervous system [Unknown]

NARRATIVE: CASE EVENT DATE: 2018
